FAERS Safety Report 12380663 (Version 1)
Quarter: 2016Q2

REPORT INFORMATION
  Report Type: Spontaneous
  Country: BR (occurrence: BR)
  Receive Date: 20160518
  Receipt Date: 20160518
  Transmission Date: 20160815
  Serious: Yes (Hospitalization)
  Sender: FDA-Public Use
  Company Number: BR-ROCHE-1758820

PATIENT
  Age: 77 Year
  Sex: Female

DRUGS (4)
  1. RIVOTRIL [Suspect]
     Active Substance: CLONAZEPAM
     Indication: DEPRESSION
     Dosage: DOSE: 2.5 MG/ML DROPS
     Route: 065
  2. LEXOTAN [Concomitant]
     Active Substance: BROMAZEPAM
     Indication: ILL-DEFINED DISORDER
  3. RIVOTRIL [Suspect]
     Active Substance: CLONAZEPAM
     Indication: BIPOLAR DISORDER
  4. LEXOTAN [Concomitant]
     Active Substance: BROMAZEPAM
     Indication: BIPOLAR DISORDER
     Route: 065

REACTIONS (4)
  - Type 2 diabetes mellitus [Unknown]
  - Thyroid disorder [Unknown]
  - Hirsutism [Unknown]
  - Cardiac disorder [Unknown]
